FAERS Safety Report 13720336 (Version 8)
Quarter: 2020Q4

REPORT INFORMATION
  Report Type: Report from Study
  Country: US (occurrence: US)
  Receive Date: 20170706
  Receipt Date: 20201005
  Transmission Date: 20210113
  Serious: Yes (Hospitalization, Other)
  Sender: FDA-Public Use
  Company Number: US-BRISTOL-MYERS SQUIBB COMPANY-BMS-2017-058890

PATIENT
  Age: 70 Year
  Sex: Female

DRUGS (11)
  1. PREDNISONE. [Suspect]
     Active Substance: PREDNISONE
     Dosage: 30 MG, QD
     Route: 048
     Dates: start: 20170801
  2. IPILIMUMAB [Suspect]
     Active Substance: IPILIMUMAB
     Indication: MALIGNANT MELANOMA
     Dosage: UNK, Q3WK
     Route: 065
     Dates: start: 20170503, end: 20170614
  3. PREDNISONE. [Suspect]
     Active Substance: PREDNISONE
     Dosage: 40 MG, BID
     Route: 048
     Dates: start: 20170714
  4. PREDNISONE. [Suspect]
     Active Substance: PREDNISONE
     Dosage: 60 MG, BID
     Route: 048
     Dates: start: 20170706
  5. NIVOLUMAB [Suspect]
     Active Substance: NIVOLUMAB
     Indication: MALIGNANT MELANOMA
     Dosage: UNK UNK, Q3WK
     Route: 065
     Dates: start: 20170503, end: 20170614
  6. PREDNISONE. [Suspect]
     Active Substance: PREDNISONE
     Dosage: 40 MG, QD
     Route: 048
     Dates: start: 20170727
  7. PREDNISONE. [Suspect]
     Active Substance: PREDNISONE
     Dosage: 50 MG, BID
     Route: 048
     Dates: start: 20170710
  8. METHYLPREDNISOLONE. [Suspect]
     Active Substance: METHYLPREDNISOLONE
     Indication: COLITIS
     Dosage: 60 MG, BID
     Route: 042
     Dates: start: 20170626, end: 20170630
  9. PREDNISONE. [Suspect]
     Active Substance: PREDNISONE
     Indication: COLITIS
     Dosage: 60 MG, UNK
     Route: 048
     Dates: start: 20170623
  10. PREDNISONE. [Suspect]
     Active Substance: PREDNISONE
     Dosage: 80 MG, BID
     Route: 048
     Dates: start: 20170630
  11. PREDNISONE. [Suspect]
     Active Substance: PREDNISONE
     Dosage: 50 MG, QD
     Route: 048
     Dates: start: 20170722

REACTIONS (9)
  - Malnutrition [Unknown]
  - Vomiting [Unknown]
  - Blood alkaline phosphatase increased [Recovered/Resolved]
  - Hypothyroidism [Unknown]
  - Nausea [Unknown]
  - Immune-mediated enterocolitis [Unknown]
  - Impaired healing [Unknown]
  - Fatigue [Recovered/Resolved]
  - Large intestine perforation [Recovered/Resolved]

NARRATIVE: CASE EVENT DATE: 20170626
